FAERS Safety Report 7990690-9 (Version None)
Quarter: 2011Q4

REPORT INFORMATION
  Report Type: 
  Country: None (occurrence: None)
  Receive Date: 20111219
  Receipt Date: 20111212
  Transmission Date: 20120403
  Serious: Yes (Hospitalization)
  Sender: FDA-Public Use
  Company Number: US-B.I. PHARMACEUTICALS,INC./RIDGEFIELD-2011-BP-23832BP

PATIENT
  Age: 81 Year
  Sex: Male

DRUGS (30)
  1. FUROSEMIDE [Concomitant]
  2. CRANBERRY [Concomitant]
  3. FISH OIL [Concomitant]
  4. CARNIPURE [Concomitant]
  5. CO Q 10 [Concomitant]
  6. ISOSORBIDE DINITRATE [Concomitant]
  7. LANTUS [Concomitant]
  8. VITAMIN C [Concomitant]
  9. BILBERRY EXTRACT [Concomitant]
  10. CHROMIUM CHLORIDE [Concomitant]
  11. CINNAMON [Concomitant]
  12. TORSEMIDE [Concomitant]
     Dosage: 20 MG
  13. BUTCHER'S BROOM [Concomitant]
  14. ISOSORBIDE DAINITRATE [Concomitant]
     Dosage: 20 MG
  15. PRADAXA [Suspect]
     Indication: ATRIAL FIBRILLATION
     Dosage: 300 MG
     Dates: start: 20110401
  16. BORON [Concomitant]
  17. EL CARNITINE [Concomitant]
  18. FLORAGLO LUTEIN [Concomitant]
  19. BROMELAIN [Concomitant]
  20. GLUCOSAMIDE AND CHONDROITIN [Concomitant]
  21. VITAMIN B-12 [Concomitant]
  22. RED YEAST RICE [Concomitant]
  23. GINKO [Concomitant]
  24. CALCIUM CITRATE [Concomitant]
  25. COMBIGAN [Concomitant]
     Route: 031
  26. CARTIA XT [Concomitant]
  27. VITAMIN D [Concomitant]
  28. VITAMIN B6 [Concomitant]
  29. NO FLUSH NIACIN [Concomitant]
  30. MULTAQ [Concomitant]
     Dosage: 800 MG

REACTIONS (3)
  - HAEMORRHAGE [None]
  - COLON POLYPECTOMY [None]
  - EYE DISORDER [None]
